FAERS Safety Report 10545251 (Version 1)
Quarter: 2014Q4

REPORT INFORMATION
  Report Type: Spontaneous
  Country: US (occurrence: US)
  Receive Date: 20141027
  Receipt Date: 20141027
  Transmission Date: 20150529
  Serious: Yes (Other)
  Sender: FDA-Public Use
  Company Number: US-BAYER-2014-154907

PATIENT
  Age: 34 Year
  Sex: Female

DRUGS (3)
  1. BAYER LOW DOSE [Suspect]
     Active Substance: ASPIRIN
     Indication: ANTICOAGULANT THERAPY
     Dosage: UNK, ONCE
     Route: 048
     Dates: start: 20141014, end: 20141014
  2. MOTRIN [Concomitant]
     Active Substance: IBUPROFEN
  3. IBUPROFEN. [Concomitant]
     Active Substance: IBUPROFEN

REACTIONS (5)
  - Paraesthesia oral [Recovered/Resolved]
  - Product use issue [Unknown]
  - Swollen tongue [Recovered/Resolved]
  - Salivary hypersecretion [Recovered/Resolved]
  - Blood disorder [Recovered/Resolved]

NARRATIVE: CASE EVENT DATE: 20141014
